FAERS Safety Report 25102978 (Version 1)
Quarter: 2025Q1

REPORT INFORMATION
  Report Type: Spontaneous
  Country: FI (occurrence: FI)
  Receive Date: 20250321
  Receipt Date: 20250321
  Transmission Date: 20250409
  Serious: Yes (Hospitalization)
  Sender: CHEPLAPHARM
  Company Number: None

PATIENT
  Age: 31 Year
  Sex: Female

DRUGS (3)
  1. OLANZAPINE PAMOATE [Suspect]
     Active Substance: OLANZAPINE PAMOATE
     Indication: Schizoaffective disorder
     Dosage: 300MG EVERY 2 WEEKS. THE DRUG WAS INJECTED INTO THE RIGHT MIDDLE GLUTEAL MUSCLE
     Route: 030
     Dates: start: 2020
  2. CHLORPROMAZINE [Concomitant]
     Active Substance: CHLORPROMAZINE
  3. HALOPERIDOL [Concomitant]
     Active Substance: HALOPERIDOL

REACTIONS (3)
  - Post-injection delirium sedation syndrome [Recovered/Resolved]
  - Overdose [Recovered/Resolved]
  - Malaise [Recovered/Resolved]

NARRATIVE: CASE EVENT DATE: 20240209
